FAERS Safety Report 8927541 (Version 1)
Quarter: 2012Q4

REPORT INFORMATION
  Report Type: 
  Country: GB (occurrence: GB)
  Receive Date: 20121127
  Receipt Date: 20121127
  Transmission Date: 20130627
  Serious: Yes (Hospitalization, Disabling)
  Sender: FDA-Public Use
  Company Number: GB-TEVA-371658ISR

PATIENT
  Age: 57 Year
  Sex: Female

DRUGS (4)
  1. METRONIDAZOLE [Suspect]
     Indication: VAGINITIS BACTERIAL
     Dosage: Single dose
     Route: 048
     Dates: start: 20121102, end: 20121102
  2. ANTIBIOTICS [Concomitant]
     Indication: KIDNEY INFECTION
     Dates: start: 201209
  3. CANESTEN [Concomitant]
  4. UNKNOWN DRUG [Concomitant]
     Indication: VAGINITIS BACTERIAL

REACTIONS (5)
  - Confusional state [Recovering/Resolving]
  - Speech disorder [Recovering/Resolving]
  - Visual impairment [Recovering/Resolving]
  - Memory impairment [Recovering/Resolving]
  - Disorientation [Recovering/Resolving]
